FAERS Safety Report 4998291-1 (Version None)
Quarter: 2006Q2

REPORT INFORMATION
  Report Type: 
  Country: None (occurrence: None)
  Receive Date: 20060508
  Receipt Date: 20060426
  Transmission Date: 20061013
  Serious: Yes (Other)
  Sender: FDA-Public Use
  Company Number: 2006056304

PATIENT
  Age: 54 Year
  Sex: Male
  Weight: 109.3169 kg

DRUGS (4)
  1. NEURONTIN [Suspect]
     Indication: CARDIAC DISORDER
     Dosage: 300 MG (300 MG, 1 IN 1 D), ORAL
     Route: 048
     Dates: start: 20040511, end: 20040511
  2. NAPROXEN [Concomitant]
  3. OMEPRAZOLE [Concomitant]
  4. HYDROCODONE BITARTRATE [Concomitant]

REACTIONS (3)
  - BACK PAIN [None]
  - DRUG HYPERSENSITIVITY [None]
  - HEART RATE DECREASED [None]
